FAERS Safety Report 12069730 (Version 3)
Quarter: 2016Q4

REPORT INFORMATION
  Report Type: Spontaneous
  Country: JP (occurrence: JP)
  Receive Date: 20160211
  Receipt Date: 20161223
  Transmission Date: 20170206
  Serious: Yes (Hospitalization, Other)
  Sender: FDA-Public Use
  Company Number: JP-ASTRAZENECA-2016SE14120

PATIENT
  Age: 90 Year
  Sex: Female

DRUGS (7)
  1. VASOLAN [Concomitant]
     Active Substance: VERAPAMIL HYDROCHLORIDE
  2. ROZEREM [Concomitant]
     Active Substance: RAMELTEON
     Dosage: 8.0MG UNKNOWN
     Route: 048
  3. RIVASTACH [Concomitant]
     Active Substance: RIVASTIGMINE
     Dosage: TAPE (INCLUDING POULTICE), 13.5 MG
  4. CEREDIST [Concomitant]
     Active Substance: TALTIRELIN
     Dosage: 5.0MG UNKNOWN
     Route: 048
  5. BAYASPIRIN [Concomitant]
     Active Substance: ASPIRIN
     Dosage: GASTRO-RESISTANT TABLET, 100 MG
     Route: 048
  6. PARIET [Concomitant]
     Active Substance: RABEPRAZOLE SODIUM
     Dosage: 10.0MG UNKNOWN
     Route: 048
  7. SEROQUEL [Suspect]
     Active Substance: QUETIAPINE FUMARATE
     Route: 048

REACTIONS (1)
  - Neuroleptic malignant syndrome [Recovered/Resolved]
